FAERS Safety Report 20398517 (Version 2)
Quarter: 2022Q1

REPORT INFORMATION
  Report Type: Spontaneous
  Country: US (occurrence: US)
  Receive Date: 20220131
  Receipt Date: 20220201
  Transmission Date: 20220423
  Serious: No
  Sender: FDA-Public Use
  Company Number: US-ABBVIE-21K-163-3878999-00

PATIENT
  Age: 67 Year
  Sex: Female

DRUGS (3)
  1. HUMIRA [Suspect]
     Active Substance: ADALIMUMAB
     Indication: Rheumatoid arthritis
     Route: 058
     Dates: start: 2021
  2. COVID-19 VACCINE [Concomitant]
     Indication: Immunisation
     Dosage: PFIZER
     Route: 030
     Dates: start: 202102, end: 202102
  3. COVID-19 VACCINE [Concomitant]
     Dosage: PFIZER
     Route: 030
     Dates: start: 2021, end: 2021

REACTIONS (2)
  - Injection site haemorrhage [Unknown]
  - Device use error [Unknown]

NARRATIVE: CASE EVENT DATE: 20210423
